FAERS Safety Report 9382793 (Version 1)
Quarter: 2013Q3

REPORT INFORMATION
  Report Type: Spontaneous
  Country: US (occurrence: US)
  Receive Date: 20130703
  Receipt Date: 20130703
  Transmission Date: 20140515
  Serious: No
  Sender: FDA-Public Use
  Company Number: US-UPSHER-SMITH LABORATORIES, INC.-13001953

PATIENT
  Age: 53 Year
  Sex: Female

DRUGS (8)
  1. DIVIGEL [Suspect]
     Indication: HOT FLUSH
     Dosage: 1 MG, QD
     Route: 061
     Dates: start: 201211
  2. DIVIGEL [Suspect]
     Indication: VULVOVAGINAL DRYNESS
  3. MULTIVITAMIN                       /01229101/ [Concomitant]
     Dosage: UNK
  4. UNSPECIFIED PROBIOTICS [Concomitant]
     Dosage: UNK
  5. B-COMPLEX                          /00003501/ [Concomitant]
     Dosage: UNK
  6. CALCIUM [Concomitant]
     Dosage: UNK
  7. FISH OIL [Concomitant]
     Dosage: UNK
  8. VITAMIN C                          /00008001/ [Concomitant]
     Dosage: UNK

REACTIONS (1)
  - Alopecia [Not Recovered/Not Resolved]
